FAERS Safety Report 13879421 (Version 1)
Quarter: 2017Q3

REPORT INFORMATION
  Report Type: Spontaneous
  Country: PL (occurrence: PL)
  Receive Date: 20170817
  Receipt Date: 20170817
  Transmission Date: 20171127
  Serious: Yes (Other)
  Sender: FDA-Public Use
  Company Number: PL-ELI_LILLY_AND_COMPANY-PL201512007200

PATIENT
  Age: 75 Year
  Sex: Male

DRUGS (6)
  1. HUMALOG MIX50/50 [Suspect]
     Active Substance: INSULIN LISPRO
     Indication: TYPE 2 DIABETES MELLITUS
     Dosage: 36 U, EACH EVENING
     Route: 058
     Dates: start: 20151211
  2. GENSULIN R [Suspect]
     Active Substance: INSULIN HUMAN
     Indication: PRODUCT USED FOR UNKNOWN INDICATION
     Dosage: UNK, QD
     Route: 058
  3. ATROX [Concomitant]
     Active Substance: ATORVASTATIN CALCIUM
     Route: 048
  4. GENSULIN M40 [Suspect]
     Active Substance: INSULIN HUMAN
     Indication: PRODUCT USED FOR UNKNOWN INDICATION
     Dosage: UNK, EACH MORNING
     Route: 058
  5. BETAXOLOL. [Concomitant]
     Active Substance: BETAXOLOL
     Route: 048
  6. HUMALOG [Suspect]
     Active Substance: INSULIN LISPRO
     Indication: PRODUCT USED FOR UNKNOWN INDICATION
     Dosage: UNK, UNKNOWN
     Route: 065

REACTIONS (6)
  - Drug ineffective [Unknown]
  - Hyperglycaemia [Recovering/Resolving]
  - Mobility decreased [Unknown]
  - Coagulopathy [Unknown]
  - Expired product administered [Unknown]
  - Insulin resistance [Unknown]

NARRATIVE: CASE EVENT DATE: 20151211
